FAERS Safety Report 5874426-3 (Version None)
Quarter: 2008Q3

REPORT INFORMATION
  Report Type: 
  Country: None (occurrence: None)
  Receive Date: 20080908
  Receipt Date: 20080827
  Transmission Date: 20090109
  Serious: Yes (Other)
  Sender: FDA-Public Use
  Company Number: US-PFIZER INC-2008061536

PATIENT
  Sex: Female
  Weight: 73 kg

DRUGS (13)
  1. CHANTIX [Suspect]
     Indication: SMOKING CESSATION THERAPY
     Dates: start: 20080605, end: 20080708
  2. ALL OTHER THERAPEUTIC PRODUCTS [Concomitant]
  3. BEANO [Concomitant]
  4. ESOMEPRAZOLE [Concomitant]
  5. CELEBREX [Concomitant]
  6. PIOGLITAZONE [Concomitant]
  7. METFORMIN [Concomitant]
  8. VICODIN [Concomitant]
  9. LOTENSIN [Concomitant]
  10. HYDROXYZINE [Concomitant]
  11. GABAPENTIN [Concomitant]
  12. FLURAZEPAM [Concomitant]
  13. LEXAPRO [Concomitant]

REACTIONS (4)
  - DEPRESSION [None]
  - DYSPEPSIA [None]
  - MEMORY IMPAIRMENT [None]
  - SUICIDAL IDEATION [None]
